FAERS Safety Report 7153319-8 (Version None)
Quarter: 2010Q4

REPORT INFORMATION
  Report Type: 
  Country: None (occurrence: None)
  Receive Date: 20101213
  Receipt Date: 20101202
  Transmission Date: 20110411
  Serious: Yes (Hospitalization)
  Sender: FDA-Public Use
  Company Number: BR-ELI_LILLY_AND_COMPANY-BR201012000812

PATIENT
  Sex: Male
  Weight: 80.4 kg

DRUGS (3)
  1. PEMETREXED [Suspect]
     Indication: NON-SMALL CELL LUNG CANCER
     Dosage: 960 MG, OTHER
     Route: 042
     Dates: start: 20101021, end: 20101113
  2. CISPLATIN [Suspect]
     Indication: NON-SMALL CELL LUNG CANCER
     Dosage: 344 MG, OTHER
     Route: 042
     Dates: start: 20101021, end: 20101113
  3. CODEINE [Concomitant]
     Indication: COUGH
     Dates: start: 20100812, end: 20101202

REACTIONS (1)
  - HEPATIC FAILURE [None]
